FAERS Safety Report 25028796 (Version 2)
Quarter: 2025Q1

REPORT INFORMATION
  Report Type: Report from Study
  Country: CA (occurrence: CA)
  Receive Date: 20250302
  Receipt Date: 20250307
  Transmission Date: 20250409
  Serious: Yes (Other)
  Sender: ABBVIE
  Company Number: CA-ABBVIE-6151766

PATIENT
  Age: 60 Year
  Sex: Female

DRUGS (1)
  1. SKYRIZI [Suspect]
     Active Substance: RISANKIZUMAB-RZAA
     Indication: Psoriasis
     Route: 058
     Dates: start: 20220302

REACTIONS (4)
  - Breast cancer female [Unknown]
  - Urinary tract infection [Unknown]
  - Herpes zoster [Unknown]
  - Stress [Unknown]

NARRATIVE: CASE EVENT DATE: 20250101
